FAERS Safety Report 9844996 (Version 2)
Quarter: 2014Q2

REPORT INFORMATION
  Report Type: Spontaneous
  Country: DE (occurrence: None)
  Receive Date: 20140123
  Receipt Date: 20140529
  Transmission Date: 20141212
  Serious: Yes (Death, Hospitalization)
  Sender: FDA-Public Use
  Company Number: 1401-0100

PATIENT
  Age: 91 Year
  Sex: Male

DRUGS (2)
  1. EYLEA (AFLIBERCEPT) INJECTION)AFLIBERCEPT) [Suspect]
     Indication: AGE-RELATED MACULAR DEGENERATION
     Dosage: APPROXIMATELY 3 INJECTIONS LEFT EYE
     Dates: start: 20130603
  2. EYLEA (AFLIBERCEPT) INJECTION)AFLIBERCEPT) [Suspect]
     Dosage: APPROXIMATELY 3 INJECTIONS LEFT EYE
     Dates: start: 20130603

REACTIONS (4)
  - Thrombosis [None]
  - Intestinal ischaemia [None]
  - Intestinal perforation [None]
  - Intestinal infarction [None]
